FAERS Safety Report 8205391-1 (Version None)
Quarter: 2012Q1

REPORT INFORMATION
  Report Type: 
  Country: None (occurrence: None)
  Receive Date: 20120313
  Receipt Date: 20120306
  Transmission Date: 20120608
  Serious: Yes (Hospitalization)
  Sender: FDA-Public Use
  Company Number: CA-JNJFOC-20120301162

PATIENT
  Sex: Male

DRUGS (1)
  1. REMICADE [Suspect]
     Indication: CROHN'S DISEASE
     Dosage: RECEIVED ABOUT 7-8 INFUSIONS
     Route: 042
     Dates: end: 20110601

REACTIONS (2)
  - INTESTINAL RESECTION [None]
  - APPENDICECTOMY [None]
